FAERS Safety Report 18855934 (Version 3)
Quarter: 2021Q1

REPORT INFORMATION
  Report Type: Spontaneous
  Country: US (occurrence: US)
  Receive Date: 20210206
  Receipt Date: 20210215
  Transmission Date: 20210420
  Serious: No
  Sender: FDA-Public Use
  Company Number: US-TEVA-2021-US-1876230

PATIENT
  Sex: Male

DRUGS (2)
  1. LORAZEPAM ACTAVIS [Suspect]
     Active Substance: LORAZEPAM
     Dosage: 8 MILLIGRAM DAILY; MONDAY, TUESDAY, WEDNESDAY
     Route: 065
  2. LORAZEPAM ACTAVIS [Suspect]
     Active Substance: LORAZEPAM
     Indication: ANXIETY DISORDER
     Dosage: 8 MILLIGRAM DAILY; START DATE: HAS BEEN TAKING FOR 25 YEARS, FREQUENCY: MONDAY, TUESDAY, WEDNESDAY
     Route: 065

REACTIONS (13)
  - Dizziness [Not Recovered/Not Resolved]
  - Palpitations [Not Recovered/Not Resolved]
  - Drug ineffective [Unknown]
  - Tremor [Recovered/Resolved]
  - Body temperature abnormal [Not Recovered/Not Resolved]
  - Heart rate increased [Not Recovered/Not Resolved]
  - Illness [Unknown]
  - Nightmare [Unknown]
  - Hypertension [Not Recovered/Not Resolved]
  - Feeling abnormal [Not Recovered/Not Resolved]
  - Product quality issue [Unknown]
  - Product size issue [Unknown]
  - Withdrawal syndrome [Not Recovered/Not Resolved]
